FAERS Safety Report 18323371 (Version 2)
Quarter: 2025Q4

REPORT INFORMATION
  Report Type: Spontaneous
  Country: EU (occurrence: EU)
  Receive Date: 20200929
  Receipt Date: 20251224
  Transmission Date: 20260118
  Serious: Yes (Hospitalization, Other)
  Sender: STRIDES
  Company Number: EU-STRIDES ARCOLAB LIMITED-2020SP011506

PATIENT
  Age: 47 Year
  Sex: Female

DRUGS (1)
  1. POTASSIUM CHLORIDE [Suspect]
     Active Substance: POTASSIUM CHLORIDE
     Indication: Product used for unknown indication
     Dosage: UNK, RECEIVED 50 TABLETS
     Route: 065

REACTIONS (6)
  - Bezoar [Unknown]
  - Stomach mass [Unknown]
  - Suicide attempt [Unknown]
  - Hyperkalaemia [Recovered/Resolved]
  - Toxicity to various agents [Unknown]
  - Intentional overdose [Unknown]
